FAERS Safety Report 21822962 (Version 1)
Quarter: 2023Q1

REPORT INFORMATION
  Report Type: Spontaneous
  Country: US (occurrence: US)
  Receive Date: 20230105
  Receipt Date: 20230105
  Transmission Date: 20230418
  Serious: No
  Sender: FDA-Public Use
  Company Number: US-AMNEAL PHARMACEUTICALS-2022-AMRX-02276

PATIENT
  Age: 47 Year
  Sex: Female

DRUGS (7)
  1. ACTIVELLA [Suspect]
     Active Substance: ESTRADIOL\NORETHINDRONE ACETATE
     Indication: Uterine leiomyoma
     Dosage: UNK
     Route: 048
     Dates: start: 20200527, end: 20220404
  2. ELAGOLIX [Suspect]
     Active Substance: ELAGOLIX
     Indication: Uterine leiomyoma
     Dosage: UNK
     Route: 048
     Dates: start: 20200527, end: 20220404
  3. IBUPROFEN [Concomitant]
     Active Substance: IBUPROFEN
     Indication: Pelvic pain
     Dosage: 800 MILLIGRAM, AS NEEDED
     Route: 048
     Dates: start: 20150101
  4. IBUPROFEN [Concomitant]
     Active Substance: IBUPROFEN
     Indication: Dysmenorrhoea
  5. IBUPROFEN [Concomitant]
     Active Substance: IBUPROFEN
     Indication: Migraine
  6. ADVIL [Concomitant]
     Active Substance: IBUPROFEN
     Indication: Migraine
     Dosage: 225 MILLIGRAM, AS NEEDED
     Route: 048
     Dates: start: 20200401
  7. SUMATRIPTAN SUCCINATE [Concomitant]
     Active Substance: SUMATRIPTAN SUCCINATE
     Indication: Migraine
     Dosage: 100 MILLIGRAM, AS NEEDED
     Route: 048
     Dates: start: 20210824

REACTIONS (1)
  - Bone density decreased [Unknown]

NARRATIVE: CASE EVENT DATE: 20220110
